FAERS Safety Report 22058750 (Version 1)
Quarter: 2023Q1

REPORT INFORMATION
  Report Type: Spontaneous
  Country: US (occurrence: US)
  Receive Date: 20230303
  Receipt Date: 20230303
  Transmission Date: 20230417
  Serious: Yes (Other)
  Sender: FDA-Public Use
  Company Number: US-AMGEN-USASP2023033267

PATIENT

DRUGS (1)
  1. TRASTUZUMAB [Suspect]
     Active Substance: TRASTUZUMAB
     Indication: Breast cancer
     Dosage: UNK
     Route: 065

REACTIONS (9)
  - Skin toxicity [Unknown]
  - Capsular contracture associated with breast implant [Unknown]
  - Breast necrosis [Unknown]
  - Breast procedural complication [Unknown]
  - Pain [Unknown]
  - Infection [Unknown]
  - Muscle contracture [Unknown]
  - Oesophagitis [Unknown]
  - Fatigue [Unknown]
